FAERS Safety Report 9409736 (Version 2)
Quarter: 2013Q3

REPORT INFORMATION
  Report Type: Report from Study
  Country: CN (occurrence: CN)
  Receive Date: 20130719
  Receipt Date: 20130730
  Transmission Date: 20140515
  Serious: Yes (Hospitalization)
  Sender: FDA-Public Use
  Company Number: CN-ASTELLAS-2013JP007564

PATIENT
  Age: 23 Year
  Sex: Male
  Weight: 66.5 kg

DRUGS (26)
  1. TACROLIMUS [Suspect]
     Indication: NEPHROTIC SYNDROME
     Dosage: 4 MG, UNKNOWN/D
     Route: 048
     Dates: start: 20130703, end: 20130705
  2. TACROLIMUS [Suspect]
     Dosage: 1 MG, UNKNOWN/D
     Route: 048
     Dates: start: 20130304, end: 20130310
  3. TACROLIMUS [Suspect]
     Dosage: 3 MG, UNKNOWN/D
     Route: 048
     Dates: start: 20130311, end: 20130312
  4. TACROLIMUS [Suspect]
     Dosage: 4 MG, UNKNOWN/D
     Route: 048
     Dates: start: 20130313, end: 20130326
  5. TACROLIMUS [Suspect]
     Dosage: 3 MG, UNKNOWN/D
     Route: 048
     Dates: start: 20130327, end: 20130702
  6. PREDNISONE [Concomitant]
     Indication: NEPHROTIC SYNDROME
     Dosage: 60 MG, UNKNOWN/D
     Route: 065
     Dates: start: 20121015, end: 20121204
  7. PREDNISONE [Concomitant]
     Dosage: 50 MG, UNKNOWN/D
     Route: 065
     Dates: start: 20121205, end: 20121211
  8. PREDNISONE [Concomitant]
     Dosage: 45 MG, UNKNOWN/D
     Route: 065
     Dates: start: 20121212, end: 20121218
  9. PREDNISONE [Concomitant]
     Dosage: 40 MG, UNKNOWN/D
     Route: 065
     Dates: start: 20121219, end: 20121225
  10. PREDNISONE [Concomitant]
     Dosage: 35 MG, UNKNOWN/D
     Route: 065
     Dates: start: 20121226, end: 20130104
  11. PREDNISONE [Concomitant]
     Dosage: 30 MG, UNKNOWN/D
     Route: 065
     Dates: start: 20130105, end: 20130111
  12. PREDNISONE [Concomitant]
     Dosage: 25 MG, UNKNOWN/D
     Route: 065
     Dates: start: 20130112, end: 20130125
  13. PREDNISONE [Concomitant]
     Dosage: 20 MG, UNKNOWN/D
     Route: 065
     Dates: start: 20130126, end: 20130204
  14. PREDNISONE [Concomitant]
     Dosage: 50 MG, UNKNOWN/D
     Route: 065
     Dates: start: 20130205, end: 20130211
  15. PREDNISONE [Concomitant]
     Dosage: 45 MG, UNKNOWN/D
     Route: 065
     Dates: start: 20130212, end: 20130218
  16. PREDNISONE [Concomitant]
     Dosage: 40 MG, UNKNOWN/D
     Route: 065
     Dates: start: 20130219, end: 20130225
  17. PREDNISONE [Concomitant]
     Dosage: 35 MG, UNKNOWN/D
     Route: 065
     Dates: start: 20130226, end: 20130304
  18. PREDNISONE [Concomitant]
     Dosage: 30 MG, UNKNOWN/D
     Route: 065
     Dates: start: 20130305, end: 20130423
  19. PREDNISONE [Concomitant]
     Dosage: 25 MG, UNKNOWN/D
     Route: 065
     Dates: start: 20130424, end: 20130705
  20. PREDNISONE [Concomitant]
     Dosage: 50 MG, UNKNOWN/D
     Route: 065
     Dates: start: 20130720
  21. FUFANG YIGANLING [Concomitant]
     Dosage: 740 MG, UNKNOWN/D
     Route: 065
     Dates: start: 20130409
  22. ASPIRIN [Concomitant]
     Dosage: 100 MG, UNKNOWN/D
     Route: 065
     Dates: start: 20130604
  23. SULFAMETHOXAZOLE [Concomitant]
     Dosage: 960 MG, UID/QD
     Route: 065
     Dates: start: 20130604
  24. CICLOSPORIN [Concomitant]
     Indication: IMMUNOSUPPRESSION
     Dosage: 50 MG, BID
     Route: 065
     Dates: start: 20130710, end: 20130718
  25. CICLOSPORIN [Concomitant]
     Dosage: 100 MG, BID
     Route: 065
     Dates: start: 20130719
  26. DILTIAZEM [Concomitant]
     Indication: IMMUNOSUPPRESSION
     Dosage: 45 MG, BID
     Route: 065
     Dates: start: 20130710

REACTIONS (2)
  - Drug ineffective [Unknown]
  - Nephrotic syndrome [Recovering/Resolving]
